FAERS Safety Report 5892876-6 (Version None)
Quarter: 2008Q3

REPORT INFORMATION
  Report Type: 
  Country: None (occurrence: None)
  Receive Date: 20080923
  Receipt Date: 20080917
  Transmission Date: 20090109
  Serious: Yes (Hospitalization, Other)
  Sender: FDA-Public Use
  Company Number: BR-ASTRAZENECA-2008UW11035

PATIENT
  Age: 39 Year
  Sex: Female
  Weight: 84.8 kg

DRUGS (9)
  1. OMEPRAZOLE [Suspect]
     Indication: DYSPEPSIA
     Route: 048
     Dates: start: 20080527, end: 20080601
  2. RAPID [Concomitant]
     Indication: DIABETES MELLITUS
  3. LANTTES [Concomitant]
     Indication: DIABETES MELLITUS
  4. GLIFAGE [Concomitant]
     Indication: DIABETES MELLITUS
  5. FERROTRATE [Concomitant]
     Indication: ANAEMIA
  6. INSULINA NPH [Concomitant]
     Indication: DIABETES MELLITUS
     Dates: start: 20030101
  7. LANTUS [Concomitant]
     Indication: DIABETES MELLITUS
     Dates: start: 20060101
  8. RANITIDINA [Concomitant]
  9. RANITIDINA [Concomitant]
     Dates: start: 20080601

REACTIONS (8)
  - CHOLELITHIASIS [None]
  - DIABETES MELLITUS INADEQUATE CONTROL [None]
  - DRUG EXPOSURE DURING PREGNANCY [None]
  - DYSPEPSIA [None]
  - PREMATURE BABY [None]
  - PRURITUS [None]
  - VOMITING [None]
  - WEIGHT DECREASED [None]
